FAERS Safety Report 6903659-X (Version None)
Quarter: 2010Q3

REPORT INFORMATION
  Report Type: 
  Country: None (occurrence: None)
  Receive Date: 20100803
  Receipt Date: 20081104
  Transmission Date: 20110219
  Serious: No
  Sender: FDA-Public Use
  Company Number: US-PFIZER INC-2008093544

PATIENT
  Age: 55 Year
  Sex: Male

DRUGS (3)
  1. LYRICA [Suspect]
  2. METHADONE HCL [Concomitant]
  3. MORPHINE SULFATE [Concomitant]

REACTIONS (2)
  - SOMNOLENCE [None]
  - WEIGHT INCREASED [None]
